FAERS Safety Report 8840446 (Version 1)
Quarter: 2012Q4

REPORT INFORMATION
  Report Type: 
  Country: US (occurrence: US)
  Receive Date: 20121015
  Receipt Date: 20121015
  Transmission Date: 20130627
  Serious: Yes (Death)
  Sender: FDA-Public Use
  Company Number: US-ROCHE-GNE104716

PATIENT
  Sex: Female
  Weight: 30.23 kg

DRUGS (3)
  1. NUTROPIN AQ [Suspect]
     Indication: DWARFISM
     Route: 058
     Dates: start: 19960619, end: 200201
  2. NUTROPIN AQ [Suspect]
     Indication: GROWTH HORMONE DEFICIENCY
  3. SANDOSTATIN LAR [Concomitant]

REACTIONS (2)
  - Diarrhoea [Recovering/Resolving]
  - Death [Fatal]
